FAERS Safety Report 10164999 (Version 1)
Quarter: 2014Q2

REPORT INFORMATION
  Report Type: Spontaneous
  Country: US (occurrence: US)
  Receive Date: 20140510
  Receipt Date: 20140510
  Transmission Date: 20141212
  Serious: No
  Sender: FDA-Public Use
  Company Number: US-BRISTOL-MYERS SQUIBB COMPANY-19687326

PATIENT
  Age: 64 Year
  Sex: Male

DRUGS (6)
  1. BYDUREON [Suspect]
  2. APIDRA [Concomitant]
     Dosage: 1DF: 100 UNITS
  3. SYNTHROID [Concomitant]
     Dosage: 1 TABLET X 5 DAYS, THEN 1.5 TABLETS X 2DAYS
  4. VITAMIN D [Concomitant]
     Dosage: 1DF: 2000 UNITS ?3 TABLETS Q/DAILY
  5. METANX [Concomitant]
     Dosage: 1DF: 3-90.314-2-35MG CAPSULE BID
  6. ALPHA-LIPOIC ACID [Concomitant]
     Dosage: 1DF: 1-3 CAPS?200MG

REACTIONS (1)
  - Rash [Unknown]
